FAERS Safety Report 4311874-7 (Version None)
Quarter: 2004Q1

REPORT INFORMATION
  Report Type: 
  Country: None (occurrence: None)
  Receive Date: 20040302
  Receipt Date: 20040124
  Transmission Date: 20041129
  Serious: No
  Sender: FDA-Public Use
  Company Number: 200412046BWH

PATIENT
  Sex: Male

DRUGS (3)
  1. LEVITRA [Suspect]
     Dosage: 20 MG, TOTAL DAILY, ORAL
     Route: 048
     Dates: start: 20040123
  2. VIAGRA [Concomitant]
  3. MUSE [Concomitant]

REACTIONS (2)
  - ANORGASMIA [None]
  - ERECTILE DYSFUNCTION [None]
